FAERS Safety Report 7219165-1 (Version None)
Quarter: 2011Q1

REPORT INFORMATION
  Report Type: 
  Country: None (occurrence: None)
  Receive Date: 20110111
  Receipt Date: 20101230
  Transmission Date: 20110831
  Serious: Yes (Other)
  Sender: FDA-Public Use
  Company Number: US-CELGENEUS-163-21880-11010401

PATIENT
  Sex: Female

DRUGS (9)
  1. DEXAMETHASONE [Concomitant]
     Route: 065
  2. AUGMENTIN '125' [Concomitant]
     Route: 065
  3. METFORMIN [Concomitant]
     Route: 065
  4. POTASSIUM [Concomitant]
     Route: 065
  5. REVLIMID [Suspect]
     Indication: MULTIPLE MYELOMA
     Route: 048
     Dates: start: 20101101
  6. AMLODIPINE BESYLATE AND BENAZEPRIL HCL [Concomitant]
     Dosage: 10/25
     Route: 065
  7. TEMAZEPAM [Concomitant]
     Route: 065
  8. LEVOTHYROXINE [Concomitant]
     Route: 065
  9. HYDROCHLOROTHIAZIDE [Concomitant]
     Route: 065

REACTIONS (1)
  - BLOOD GLUCOSE ABNORMAL [None]
